FAERS Safety Report 15503634 (Version 1)
Quarter: 2018Q4

REPORT INFORMATION
  Report Type: Spontaneous
  Country: US (occurrence: US)
  Receive Date: 20181009
  Receipt Date: 20181009
  Transmission Date: 20190205
  Serious: No
  Sender: FDA-Public Use
  Company Number: None

PATIENT
  Age: 39 Year
  Sex: Female
  Weight: 64.35 kg

DRUGS (2)
  1. MONTELUKAST SODIUM TABLETS, USP 10MG, LOT# MON17384 EXP. 12/31/2019, [Suspect]
     Active Substance: MONTELUKAST SODIUM
     Indication: MULTIPLE ALLERGIES
     Dosage: ?          QUANTITY:1 TABLET(S);?
     Route: 048
     Dates: start: 20180928, end: 20181009
  2. SYNTHROID [Concomitant]
     Active Substance: LEVOTHYROXINE SODIUM

REACTIONS (8)
  - Hypersensitivity [None]
  - Hypotension [None]
  - Swelling face [None]
  - Fatigue [None]
  - Wrong product administered [None]
  - Product label on wrong product [None]
  - Product dispensing error [None]
  - Nausea [None]

NARRATIVE: CASE EVENT DATE: 20181003
